FAERS Safety Report 5954521-0 (Version None)
Quarter: 2008Q4

REPORT INFORMATION
  Report Type: 
  Country: None (occurrence: None)
  Receive Date: 20081117
  Receipt Date: 20081112
  Transmission Date: 20090506
  Serious: Yes (Other)
  Sender: FDA-Public Use
  Company Number: US-BAYER-200838320NA

PATIENT
  Age: 39 Year
  Sex: Female

DRUGS (1)
  1. AVELOX [Suspect]
     Indication: UNEVALUABLE EVENT

REACTIONS (3)
  - DYSPNOEA [None]
  - HYPERSENSITIVITY [None]
  - RASH [None]
